FAERS Safety Report 4302142-8 (Version None)
Quarter: 2004Q1

REPORT INFORMATION
  Report Type: 
  Country: None (occurrence: None)
  Receive Date: 20040220
  Receipt Date: 20040209
  Transmission Date: 20041129
  Serious: Yes (Hospitalization)
  Sender: FDA-Public Use
  Company Number: 04P-062-0249992-00

PATIENT
  Sex: Female

DRUGS (2)
  1. HUMIRA [Suspect]
     Indication: RHEUMATOID ARTHRITIS
     Dosage: 40 MG, 1 IN 2 WK, SUBCUTANEOUS
     Route: 058
     Dates: start: 20040101, end: 20040119
  2. METHOTREXATE SODIUM [Concomitant]

REACTIONS (4)
  - COMMINUTED FRACTURE [None]
  - FALL [None]
  - SKIN LESION [None]
  - UPPER LIMB FRACTURE [None]
